FAERS Safety Report 15476345 (Version 1)
Quarter: 2018Q4

REPORT INFORMATION
  Report Type: Report from Study
  Country: CA (occurrence: CA)
  Receive Date: 20181009
  Receipt Date: 20181009
  Transmission Date: 20190205
  Serious: Yes (Death)
  Sender: FDA-Public Use
  Company Number: PHHY2016CA124220

PATIENT
  Age: 84 Year
  Sex: Female

DRUGS (2)
  1. JADENU [Suspect]
     Active Substance: DEFERASIROX
     Dosage: 1080 MG (6 TABLETS OF 180 MG), QD
     Route: 048
     Dates: start: 20160624
  2. JADENU [Suspect]
     Active Substance: DEFERASIROX
     Indication: MYELOFIBROSIS
     Dosage: 900 MG, QD
     Route: 048
     Dates: start: 20140624

REACTIONS (3)
  - Serum ferritin increased [Unknown]
  - Influenza [Unknown]
  - Death [Fatal]

NARRATIVE: CASE EVENT DATE: 201807
